FAERS Safety Report 7583366-3 (Version None)
Quarter: 2011Q2

REPORT INFORMATION
  Report Type: 
  Country: None (occurrence: None)
  Receive Date: 20110627
  Receipt Date: 20110627
  Transmission Date: 20111010
  Serious: Yes (Other)
  Sender: FDA-Public Use
  Company Number: None

PATIENT
  Sex: Female
  Weight: 72.5755 kg

DRUGS (5)
  1. ASPIRIN [Concomitant]
  2. DAPSONE [Concomitant]
  3. LIVALO [Suspect]
     Indication: BLOOD CHOLESTEROL INCREASED
     Dosage: .5 MG 1 PER DAY PO
     Route: 048
     Dates: start: 20110416, end: 20110417
  4. PLAVIX [Concomitant]
  5. PROPRANOLOL [Concomitant]

REACTIONS (2)
  - BURNING SENSATION [None]
  - MUSCLE DISORDER [None]
